FAERS Safety Report 8594830-2 (Version None)
Quarter: 2012Q2

REPORT INFORMATION
  Report Type: 
  Country: None (occurrence: None)
  Receive Date: 20120423
  Receipt Date: 20100622
  Transmission Date: 20120825
  Serious: Yes (Hospitalization, Other)
  Sender: FDA-Public Use
  Company Number: PHHY2010US33338

PATIENT
  Sex: Female
  Weight: 59 kg

DRUGS (7)
  1. NAPROXEN (ALEVE) [Concomitant]
  2. PHENERGAN HCL [Concomitant]
  3. MULTIVITAMINS (ASCORBIC ACID, ERGOCALCIFEROL, FOLIC ACID, NICOTINAMIDE [Concomitant]
  4. FOLIC ACID [Concomitant]
  5. EXCEDRIN MIGRAINE (ACETYLSALICYLIC ACID, CAFFEINE, PARACETAMOL) [Concomitant]
  6. EXJADE [Suspect]
     Indication: SICKLE CELL ANAEMIA
     Dosage: 1000 MG DAILY, ORAL ; 500 MG /DAILY, ORAL
     Route: 048
     Dates: start: 20100302
  7. NORCO [Concomitant]

REACTIONS (9)
  - DIARRHOEA [None]
  - SERUM FERRITIN INCREASED [None]
  - NAUSEA [None]
  - RENAL IMPAIRMENT [None]
  - LIVER FUNCTION TEST ABNORMAL [None]
  - FATIGUE [None]
  - SKIN DISORDER [None]
  - BLOOD CREATININE INCREASED [None]
  - SICKLE CELL ANAEMIA WITH CRISIS [None]
